FAERS Safety Report 8867203 (Version 1)
Quarter: 2012Q4

REPORT INFORMATION
  Report Type: 
  Country: US (occurrence: US)
  Receive Date: 20121025
  Receipt Date: 20121025
  Transmission Date: 20130627
  Serious: No
  Sender: FDA-Public Use
  Company Number: US-AMGEN-USASP2012015526

PATIENT
  Age: 50 Year
  Sex: Male
  Weight: 87.08 kg

DRUGS (3)
  1. ENBREL [Suspect]
     Dosage: 50 mg, qwk
     Route: 058
  2. LISINOPRIL [Concomitant]
     Dosage: 2.5 mg, UNK
  3. METHOTREXATE [Concomitant]
     Dosage: 2.5 mg, UNK

REACTIONS (2)
  - Upper respiratory tract infection [Unknown]
  - Injection site bruising [Unknown]
